FAERS Safety Report 5233652-7 (Version None)
Quarter: 2007Q1

REPORT INFORMATION
  Report Type: 
  Country: None (occurrence: None)
  Receive Date: 20070208
  Receipt Date: 20070129
  Transmission Date: 20070707
  Serious: Yes (Other)
  Sender: FDA-Public Use
  Company Number: 2007AC00201

PATIENT
  Age: 19 Month
  Sex: Female

DRUGS (1)
  1. LOSEC [Suspect]
     Indication: HYPERCHLORHYDRIA
     Dosage: STARTED MORE THAN ONE YEAR PRIOR TO EVENT

REACTIONS (1)
  - OXYGEN SATURATION DECREASED [None]
